FAERS Safety Report 16439207 (Version 1)
Quarter: 2019Q2

REPORT INFORMATION
  Report Type: Report from Study
  Country: FR (occurrence: FR)
  Receive Date: 20190617
  Receipt Date: 20190617
  Transmission Date: 20190711
  Serious: Yes (Other)
  Sender: FDA-Public Use
  Company Number: FR-ROCHE-1054250

PATIENT
  Age: 61 Year
  Sex: Female
  Weight: 46 kg

DRUGS (24)
  1. DEXAMETHASONE. [Suspect]
     Active Substance: DEXAMETHASONE
     Indication: MANTLE CELL LYMPHOMA
     Route: 065
     Dates: start: 20110615
  2. CISPLATIN. [Suspect]
     Active Substance: CISPLATIN
     Indication: MANTLE CELL LYMPHOMA
     Dosage: CYCLE 1
     Route: 065
     Dates: start: 20110615
  3. DEXAMETHASONE. [Suspect]
     Active Substance: DEXAMETHASONE
     Dosage: CYCLE 3
     Route: 065
     Dates: start: 20110801, end: 20110802
  4. RITUXIMAB. [Suspect]
     Active Substance: RITUXIMAB
     Indication: MANTLE CELL LYMPHOMA
     Dosage: CYCLE 1
     Route: 041
     Dates: start: 20110615
  5. RITUXIMAB. [Suspect]
     Active Substance: RITUXIMAB
     Dosage: CYCLE 3
     Route: 042
     Dates: start: 20110801, end: 20110802
  6. CISPLATIN. [Suspect]
     Active Substance: CISPLATIN
     Dosage: CYCLE 2
     Route: 065
  7. CYTARABINE. [Suspect]
     Active Substance: CYTARABINE
     Indication: MANTLE CELL LYMPHOMA
     Dosage: CYCLE 1
     Route: 065
     Dates: start: 20110615
  8. ETOPOSIDE. [Suspect]
     Active Substance: ETOPOSIDE
     Indication: MANTLE CELL LYMPHOMA
     Route: 065
     Dates: start: 20111122
  9. CARMUSTINE. [Suspect]
     Active Substance: CARMUSTINE
     Indication: MANTLE CELL LYMPHOMA
     Route: 065
     Dates: start: 20111122
  10. MELPHALAN. [Suspect]
     Active Substance: MELPHALAN
     Indication: MANTLE CELL LYMPHOMA
     Route: 065
     Dates: start: 20111122
  11. PANTOPRAZOLE [Concomitant]
     Active Substance: PANTOPRAZOLE
     Indication: GASTROOESOPHAGEAL REFLUX DISEASE
  12. EUPANTOL [Concomitant]
     Active Substance: PANTOPRAZOLE SODIUM
     Indication: GASTROOESOPHAGEAL REFLUX DISEASE
  13. RITUXIMAB. [Suspect]
     Active Substance: RITUXIMAB
     Dosage: CYCLE 2
     Route: 042
  14. CISPLATIN. [Suspect]
     Active Substance: CISPLATIN
     Dosage: CYCLE 3
     Route: 065
     Dates: start: 20110801, end: 20110802
  15. LEVOTHYROX [Concomitant]
     Active Substance: LEVOTHYROXINE
     Indication: HYPOTHYROIDISM
  16. RITUXIMAB. [Suspect]
     Active Substance: RITUXIMAB
     Route: 042
     Dates: start: 20111122
  17. DEXAMETHASONE. [Suspect]
     Active Substance: DEXAMETHASONE
     Dosage: CYCLE 2
     Route: 065
  18. CYTARABINE. [Suspect]
     Active Substance: CYTARABINE
     Dosage: CYCLE 2
     Route: 065
  19. CYTARABINE. [Suspect]
     Active Substance: CYTARABINE
     Dosage: CYCLE 3
     Route: 065
     Dates: start: 20110801, end: 20110802
  20. CYTARABINE. [Suspect]
     Active Substance: CYTARABINE
     Route: 065
     Dates: start: 20111122
  21. METOPIMAZINE [Concomitant]
     Active Substance: METOPIMAZINE
     Indication: NAUSEA
  22. FLUCONAZOLE. [Concomitant]
     Active Substance: FLUCONAZOLE
     Indication: FUNGAL INFECTION
  23. VOGALENE [Concomitant]
     Active Substance: METOPIMAZINE
     Indication: NAUSEA
  24. ZELITREX [Concomitant]
     Active Substance: VALACYCLOVIR HYDROCHLORIDE
     Indication: INFECTION PROPHYLAXIS

REACTIONS (1)
  - Hepatic steatosis [Recovered/Resolved]

NARRATIVE: CASE EVENT DATE: 20120304
